FAERS Safety Report 5759424-2 (Version None)
Quarter: 2008Q2

REPORT INFORMATION
  Report Type: 
  Country: None (occurrence: None)
  Receive Date: 20080605
  Receipt Date: 20080528
  Transmission Date: 20081010
  Serious: Yes (Hospitalization)
  Sender: FDA-Public Use
  Company Number: DE-BRISTOL-MYERS SQUIBB COMPANY-14205926

PATIENT
  Age: 58 Year
  Sex: Male
  Weight: 67 kg

DRUGS (3)
  1. CETUXIMAB [Suspect]
     Indication: NON-SMALL CELL LUNG CANCER
     Dosage: 2MG/ML. TAKEN 750 MG 1 IN 1 W FROM 05MAR08-30APR08(55 DAYS) . MOST RECENT INFUSION WAS ON 23APR08.
     Route: 042
     Dates: start: 20080305
  2. DOCETAXEL [Suspect]
     Indication: NON-SMALL CELL LUNG CANCER
     Route: 042
     Dates: start: 20080416
  3. GEMCITABINE [Suspect]
     Indication: NON-SMALL CELL LUNG CANCER
     Dosage: MOST RECENT INFUSION ON 03APR08
     Route: 042
     Dates: start: 20080305

REACTIONS (2)
  - LEUKOCYTOSIS [None]
  - PYREXIA [None]
